FAERS Safety Report 8173273-X (Version None)
Quarter: 2012Q1

REPORT INFORMATION
  Report Type: 
  Country: None (occurrence: None)
  Receive Date: 20120229
  Receipt Date: 20120222
  Transmission Date: 20120608
  Serious: Yes (Hospitalization)
  Sender: FDA-Public Use
  Company Number: FR-SANOFI-AVENTIS-2012SA012965

PATIENT

DRUGS (1)
  1. CHLOROQUINE PHOSPHATE [Suspect]
     Route: 048

REACTIONS (2)
  - RENAL FAILURE [None]
  - INTENTIONAL OVERDOSE [None]
